FAERS Safety Report 7369218-2 (Version None)
Quarter: 2011Q1

REPORT INFORMATION
  Report Type: 
  Country: None (occurrence: None)
  Receive Date: 20110323
  Receipt Date: 20110315
  Transmission Date: 20110831
  Serious: Yes (Other)
  Sender: FDA-Public Use
  Company Number: CA-ROCHE-766214

PATIENT
  Sex: Female
  Weight: 60.8 kg

DRUGS (10)
  1. ZOPICLONE [Concomitant]
  2. CODEINE CONTIN [Concomitant]
  3. PREDNISONE [Concomitant]
  4. TIMEROL [Concomitant]
     Dosage: EYE DROPS
  5. CALCIUM [Concomitant]
  6. CYCLOBENZAPRINE [Concomitant]
     Dosage: DOSE AS NEEDED
  7. ASPIRIN [Concomitant]
  8. TOCILIZUMAB [Suspect]
     Indication: RHEUMATOID ARTHRITIS
     Route: 042
     Dates: start: 20101027
  9. CODEINE PHOSPHATE [Concomitant]
  10. VITAMIN D [Concomitant]

REACTIONS (7)
  - FATIGUE [None]
  - RENAL CYST [None]
  - CHOLESTASIS [None]
  - DYSPNOEA [None]
  - ASTHENIA [None]
  - ABDOMINAL PAIN UPPER [None]
  - PANCREATIC CYST [None]
